FAERS Safety Report 22650343 (Version 1)
Quarter: 2023Q2

REPORT INFORMATION
  Report Type: Spontaneous
  Country: US (occurrence: US)
  Receive Date: 20230628
  Receipt Date: 20230628
  Transmission Date: 20230722
  Serious: No
  Sender: FDA-Public Use
  Company Number: US-MAYNE PHARMA-2022TMD00671

PATIENT
  Sex: Female
  Weight: 59.864 kg

DRUGS (2)
  1. IMVEXXY [Suspect]
     Active Substance: ESTRADIOL
     Indication: Atrophic vulvovaginitis
     Dosage: 4 ?G, 2X/WEEK
     Route: 067
     Dates: start: 202107, end: 2022
  2. IMVEXXY [Suspect]
     Active Substance: ESTRADIOL
     Dosage: LOWER DOSE
     Route: 067
     Dates: start: 2022, end: 20220623

REACTIONS (3)
  - Abdominal distension [Recovered/Resolved]
  - Withdrawal bleed [Not Recovered/Not Resolved]
  - Breast pain [Recovered/Resolved]

NARRATIVE: CASE EVENT DATE: 20220101
